FAERS Safety Report 6989751-2 (Version None)
Quarter: 2010Q3

REPORT INFORMATION
  Report Type: 
  Country: None (occurrence: None)
  Receive Date: 20100916
  Receipt Date: 20100222
  Transmission Date: 20110219
  Serious: Yes (Other)
  Sender: FDA-Public Use
  Company Number: SE-PFIZER INC-2010022548

PATIENT
  Sex: Male

DRUGS (13)
  1. LYRICA [Suspect]
     Indication: NEURALGIA
     Dosage: UNK
     Route: 048
     Dates: start: 20091217, end: 20100109
  2. LYRICA [Suspect]
     Indication: NEURITIS
  3. ALVEDON [Concomitant]
     Dosage: UNK
  4. PROGRAF [Concomitant]
     Dosage: UNK
  5. OMEPRAZOLE [Concomitant]
     Dosage: UNK
  6. DIFLUCAN [Concomitant]
     Dosage: UNK
  7. LACTULOSE [Concomitant]
     Dosage: UNK
  8. PROPAVAN [Concomitant]
     Dosage: UNK
  9. AMITRIPTYLINE HCL [Concomitant]
     Dosage: UNK
  10. MYCOSTATIN [Concomitant]
     Dosage: UNK
  11. ANDAPSIN [Concomitant]
     Dosage: UNK
  12. DOLCONTIN [Concomitant]
     Dosage: UNK
  13. CALCIUMFOLINAT ^GRY^ [Concomitant]
     Dosage: UNK

REACTIONS (2)
  - TRANSAMINASES INCREASED [None]
  - VASCULAR OCCLUSION [None]
